FAERS Safety Report 5570050-0 (Version None)
Quarter: 2007Q4

REPORT INFORMATION
  Report Type: 
  Country: None (occurrence: None)
  Receive Date: 20071217
  Receipt Date: 20071204
  Transmission Date: 20080405
  Serious: Yes (Disabling)
  Sender: FDA-Public Use
  Company Number: GXKR2007GB10425

PATIENT
  Sex: Female
  Weight: 90 kg

DRUGS (3)
  1. AMLODIPINE [Suspect]
     Indication: BLOOD PRESSURE
     Dosage: 1 DF, QD, ORAL
     Route: 048
     Dates: start: 20071020, end: 20071025
  2. OMEPRAZOLE [Concomitant]
  3. DOTHIEPIN HYDROCHLORIDE [Concomitant]

REACTIONS (5)
  - BALANCE DISORDER [None]
  - CHEST PAIN [None]
  - PAIN IN EXTREMITY [None]
  - TREMOR [None]
  - VISUAL ACUITY REDUCED [None]
